FAERS Safety Report 4375198-4 (Version None)
Quarter: 2004Q2

REPORT INFORMATION
  Report Type: 
  Country: None (occurrence: None)
  Receive Date: 20040607
  Receipt Date: 20030728
  Transmission Date: 20050107
  Serious: Yes (Other)
  Sender: FDA-Public Use
  Company Number: 343657

PATIENT
  Age: 21 Year
  Sex: Female
  Weight: 49.9 kg

DRUGS (2)
  1. ACCUTANE [Suspect]
     Indication: ACNE
     Dosage: ORAL
     Route: 048
     Dates: start: 20030102
  2. ORTHO TRI-CYCLEN [Suspect]
     Indication: ORAL CONTRACEPTION
     Dosage: 1 PER DAY ORAL
     Route: 048
     Dates: start: 20020107

REACTIONS (2)
  - ADVERSE EVENT [None]
  - METRORRHAGIA [None]
